FAERS Safety Report 4791705-1 (Version None)
Quarter: 2005Q4

REPORT INFORMATION
  Report Type: 
  Country: None (occurrence: None)
  Receive Date: 20051007
  Receipt Date: 20050929
  Transmission Date: 20060501
  Serious: Yes (Hospitalization)
  Sender: FDA-Public Use
  Company Number: FR-GLAXOSMITHKLINE-B0395617A

PATIENT
  Age: 62 Year
  Sex: Female

DRUGS (5)
  1. EPIVIR [Suspect]
     Indication: HIV INFECTION
     Dosage: 1TAB PER DAY
     Route: 048
     Dates: start: 19980219
  2. BACTRIM [Suspect]
     Dosage: 1TAB PER DAY
     Route: 048
  3. ZERIT [Suspect]
     Indication: HIV INFECTION
     Dosage: 1UNIT PER DAY
     Route: 048
     Dates: start: 19980219
  4. SUSTIVA [Suspect]
     Indication: HIV INFECTION
     Dosage: 1UNIT PER DAY
     Route: 048
     Dates: start: 19990408
  5. LEVOTHYROX [Suspect]
     Dosage: 100MCG PER DAY
     Route: 048

REACTIONS (7)
  - ASTHENIA [None]
  - CLONUS [None]
  - CONVULSION [None]
  - EYE DISORDER [None]
  - LOSS OF CONSCIOUSNESS [None]
  - MALAISE [None]
  - RESPIRATION ABNORMAL [None]
